FAERS Safety Report 6991906-8 (Version None)
Quarter: 2010Q3

REPORT INFORMATION
  Report Type: 
  Country: None (occurrence: None)
  Receive Date: 20100916
  Receipt Date: 20100916
  Transmission Date: 20110219
  Serious: No
  Sender: FDA-Public Use
  Company Number: None

PATIENT
  Age: 66 Year
  Sex: Male
  Weight: 119.7496 kg

DRUGS (3)
  1. ACTEMRA [Suspect]
     Indication: RHEUMATOID ARTHRITIS
     Dosage: 6/30/10 PER PROTOCOL IV
     Route: 042
     Dates: start: 20100630
  2. ACTEMRA [Suspect]
     Indication: RHEUMATOID ARTHRITIS
     Dosage: 6/30/10 PER PROTOCOL IV
     Route: 042
     Dates: start: 20100728
  3. ACTEMRA [Suspect]
     Indication: RHEUMATOID ARTHRITIS
     Dosage: 6/30/10 PER PROTOCOL IV
     Route: 042
     Dates: start: 20100825

REACTIONS (1)
  - MUSCLE TIGHTNESS [None]
